FAERS Safety Report 8918980 (Version 2)
Quarter: 2012Q4

REPORT INFORMATION
  Report Type: 
  Country: AT (occurrence: AT)
  Receive Date: 20121121
  Receipt Date: 20121129
  Transmission Date: 20130627
  Serious: Yes (Other)
  Sender: FDA-Public Use
  Company Number: AT-GENZYME-CAMP-1002505

PATIENT
  Age: 72 Year
  Sex: Female
  Weight: 55 kg

DRUGS (4)
  1. CAMPATH [Suspect]
     Indication: T-CELL CHRONIC LYMPHOCYTIC LEUKAEMIA
     Dosage: 3 mg, qd
     Route: 058
     Dates: start: 20121030, end: 20121030
  2. CAMPATH [Suspect]
     Dosage: 3 mg, UNK
     Route: 058
     Dates: start: 20121102
  3. PARACETAMOL [Concomitant]
     Indication: PROPHYLAXIS
     Dosage: 500 mg, once
     Route: 048
     Dates: start: 20121030, end: 20121030
  4. DIBONDRIN [Concomitant]
     Indication: PROPHYLAXIS
     Dosage: UNK
     Route: 042
     Dates: start: 20121030, end: 20121030

REACTIONS (4)
  - Swollen tongue [Recovered/Resolved]
  - Tachycardia [Recovered/Resolved]
  - Chills [Recovered/Resolved]
  - Nausea [Recovered/Resolved]
